FAERS Safety Report 5605595-8 (Version None)
Quarter: 2008Q1

REPORT INFORMATION
  Report Type: 
  Country: None (occurrence: None)
  Receive Date: 20080125
  Receipt Date: 20080125
  Transmission Date: 20080703
  Serious: No
  Sender: FDA-Public Use
  Company Number: None

PATIENT
  Age: 79 Year
  Sex: Male
  Weight: 123.832 kg

DRUGS (1)
  1. LEVAQUIN [Suspect]
     Indication: ASTHMA
     Dosage: 1 TABLET DAILY PO
     Route: 048
     Dates: start: 20080111, end: 20080113

REACTIONS (3)
  - AGITATION [None]
  - HALLUCINATION, VISUAL [None]
  - NIGHTMARE [None]
